FAERS Safety Report 8358090-X (Version None)
Quarter: 2012Q2

REPORT INFORMATION
  Report Type: 
  Country: None (occurrence: None)
  Receive Date: 20120514
  Receipt Date: 20120501
  Transmission Date: 20120825
  Serious: Yes (Congenital Anomaly)
  Sender: FDA-Public Use
  Company Number: DE-MYLANLABS-2012S1009398

PATIENT
  Sex: Male

DRUGS (6)
  1. ALENDRONIC ACID [Concomitant]
     Route: 064
  2. PREDNISONE [Concomitant]
     Route: 064
  3. AZATHIOPRINE [Concomitant]
     Route: 064
  4. HYDROXYCHLOROQUINE SULFATE [Concomitant]
     Route: 064
  5. ASPIRIN [Concomitant]
     Route: 064
  6. MYCOPHENOLATE MOFETIL [Suspect]
     Indication: SYSTEMIC LUPUS ERYTHEMATOSUS
     Dosage: 0.75 G/DAY
     Route: 064

REACTIONS (16)
  - OESOPHAGEAL ATRESIA [None]
  - CONGENITAL ARTERIAL MALFORMATION [None]
  - MATERNAL EXPOSURE DURING PREGNANCY [None]
  - MICROTIA [None]
  - BRACHYCEPHALY [None]
  - MICROGNATHIA [None]
  - CLINODACTYLY [None]
  - CONGENITAL ANOMALY [None]
  - CONGENITAL CYST [None]
  - CAMPTODACTYLY CONGENITAL [None]
  - COLOBOMA [None]
  - EXTERNAL AUDITORY CANAL ATRESIA [None]
  - SKIN HYPOPLASIA [None]
  - OLFACTORY NERVE DISORDER [None]
  - HYPERTELORISM OF ORBIT [None]
  - RETROGNATHIA [None]
